FAERS Safety Report 18286317 (Version 1)
Quarter: 2020Q3

REPORT INFORMATION
  Report Type: Spontaneous
  Country: US (occurrence: US)
  Receive Date: 20200920
  Receipt Date: 20200920
  Transmission Date: 20201103
  Serious: Yes (Hospitalization)
  Sender: FDA-Public Use
  Company Number: US-NOVITIUMPHARMA-2020USNVP00057

PATIENT
  Age: 56 Year
  Sex: Male

DRUGS (11)
  1. PREDNISONE. [Suspect]
     Active Substance: PREDNISONE
  2. TACROLIMUS. [Suspect]
     Active Substance: TACROLIMUS
  3. ASPIRIN. [Suspect]
     Active Substance: ASPIRIN
  4. PANTOPRAZOLE [Suspect]
     Active Substance: PANTOPRAZOLE
     Indication: PROPHYLAXIS AGAINST GASTROINTESTINAL ULCER
  5. PREDNISONE. [Suspect]
     Active Substance: PREDNISONE
  6. AZOTHIOPRINE [Concomitant]
     Active Substance: AZATHIOPRINE
     Indication: HEART TRANSPLANT
  7. PREDNISONE. [Suspect]
     Active Substance: PREDNISONE
  8. MYCOPHENOLATE MOFETIL. [Suspect]
     Active Substance: MYCOPHENOLATE MOFETIL
  9. MYCOPHENOLATE MOFETIL. [Suspect]
     Active Substance: MYCOPHENOLATE MOFETIL
  10. PANTOPRAZOLE [Suspect]
     Active Substance: PANTOPRAZOLE
     Route: 042
  11. PANTOPRAZOLE [Suspect]
     Active Substance: PANTOPRAZOLE

REACTIONS (13)
  - Leukopenia [Recovering/Resolving]
  - Nausea [Recovering/Resolving]
  - Iron deficiency anaemia [Recovering/Resolving]
  - Melaena [Recovering/Resolving]
  - Abdominal pain upper [Recovering/Resolving]
  - Decreased appetite [Recovering/Resolving]
  - Aphthous ulcer [Recovering/Resolving]
  - Gastric ulcer [Recovering/Resolving]
  - Asthenia [Recovering/Resolving]
  - Thrombocytosis [Recovering/Resolving]
  - Vomiting [Recovering/Resolving]
  - Weight decreased [Recovering/Resolving]
  - Abdominal pain [Recovering/Resolving]
